FAERS Safety Report 20874671 (Version 6)
Quarter: 2022Q3

REPORT INFORMATION
  Report Type: Spontaneous
  Country: JP (occurrence: JP)
  Receive Date: 20220525
  Receipt Date: 20220912
  Transmission Date: 20221026
  Serious: Yes (Death, Hospitalization, Other)
  Sender: FDA-Public Use
  Company Number: JP-NBI-J202209041BIPI

PATIENT
  Age: 75 Year
  Sex: Male
  Weight: 47.2 kg

DRUGS (17)
  1. JARDIANCE [Suspect]
     Active Substance: EMPAGLIFLOZIN
     Indication: Type 2 diabetes mellitus
     Route: 048
     Dates: end: 20220516
  2. JARDIANCE [Suspect]
     Active Substance: EMPAGLIFLOZIN
     Route: 048
     Dates: end: 20220517
  3. DIGOXIN [Concomitant]
     Active Substance: DIGOXIN
     Indication: Aortic valve replacement
     Route: 048
     Dates: end: 20220516
  4. DIGOXIN [Concomitant]
     Active Substance: DIGOXIN
     Indication: Product used for unknown indication
     Route: 065
     Dates: end: 20220517
  5. WARFARIN [Concomitant]
     Active Substance: WARFARIN
     Indication: Aortic valve replacement
     Route: 048
     Dates: end: 20220516
  6. LIPITOR [Concomitant]
     Active Substance: ATORVASTATIN CALCIUM
     Indication: Dyslipidaemia
     Route: 048
     Dates: end: 20220516
  7. LIPITOR [Concomitant]
     Active Substance: ATORVASTATIN CALCIUM
     Indication: Product used for unknown indication
     Route: 065
     Dates: end: 20220517
  8. LIPIDIL [Concomitant]
     Active Substance: FENOFIBRATE
     Indication: Dyslipidaemia
     Route: 048
     Dates: end: 20220516
  9. LIPIDIL [Concomitant]
     Active Substance: FENOFIBRATE
     Indication: Product used for unknown indication
     Route: 065
     Dates: end: 20220517
  10. TEMOCAPRIL HYDROCHLORIDE [Concomitant]
     Active Substance: TEMOCAPRIL HYDROCHLORIDE
     Indication: Hypertension
     Route: 048
     Dates: end: 20220516
  11. GLIMEPIRIDE [Concomitant]
     Active Substance: GLIMEPIRIDE
     Indication: Type 2 diabetes mellitus
     Route: 048
     Dates: end: 20220516
  12. BASEN [Concomitant]
     Indication: Type 2 diabetes mellitus
     Route: 048
     Dates: end: 20220516
  13. METGLUCO [Concomitant]
     Active Substance: METFORMIN HYDROCHLORIDE
     Indication: Type 2 diabetes mellitus
     Route: 048
     Dates: end: 20220516
  14. METGLUCO [Concomitant]
     Active Substance: METFORMIN HYDROCHLORIDE
     Indication: Product used for unknown indication
     Route: 065
     Dates: end: 20220517
  15. GASTER [Concomitant]
     Active Substance: FAMOTIDINE
     Indication: Aortic valve replacement
     Route: 048
     Dates: end: 20220516
  16. RYBELSUS [Concomitant]
     Active Substance: SEMAGLUTIDE
     Indication: Type 2 diabetes mellitus
     Route: 048
     Dates: end: 20220516
  17. RYBELSUS [Concomitant]
     Active Substance: SEMAGLUTIDE
     Indication: Product used for unknown indication
     Route: 065
     Dates: end: 20220517

REACTIONS (11)
  - Contusion [Fatal]
  - Ketoacidosis [Fatal]
  - Brain contusion [Fatal]
  - Subarachnoid haemorrhage [Fatal]
  - Cerebral haemorrhage [Fatal]
  - Lactic acidosis [Fatal]
  - Fall [Fatal]
  - Glucose urine present [Unknown]
  - Polyuria [Unknown]
  - Electrolyte imbalance [Unknown]
  - Glucose urine present [Unknown]

NARRATIVE: CASE EVENT DATE: 20220517
